FAERS Safety Report 8609559 (Version 2)
Quarter: 2014Q1

REPORT INFORMATION
  Report Type: Spontaneous
  Country: US (occurrence: None)
  Receive Date: 20120323
  Receipt Date: 20130305
  Transmission Date: 20141002
  Serious: Yes (Hospitalization, Other)
  Sender: FDA-Public Use
  Company Number: 163-21880-11120504

PATIENT
  Age: 61 Year
  Sex: Male

DRUGS (10)
  1. REVLIMID (LENALIDOMIDE) (15 MILLIGRAM, CAPSULES) [Suspect]
     Indication: PLASMA CELL MYELOMA
     Dosage: 25 MG, DAILY X 21 DAYS, PO
     Route: 048
     Dates: start: 20111103
  2. ACYCLOVIR [Concomitant]
  3. ALLOPURINOL [Concomitant]
  4. AMLODIPINE BESYLATE [Concomitant]
  5. CIPROFLOXACIN EXTENDED-RELEASE [Concomitant]
  6. COREG [Concomitant]
  7. OXCODONE HCL (OXYCODONE HYDROCLORIDE) [Concomitant]
  8. OXYCONTIN [Concomitant]
  9. PROTONIX [Concomitant]
  10. COUMADIN [Concomitant]

REACTIONS (6)
  - Heart rate irregular [None]
  - Dyspnoea [None]
  - Pneumonia [None]
  - Supraventricular tachycardia [None]
  - Chronic obstructive pulmonary disease [None]
  - Bronchitis [None]
